FAERS Safety Report 17230026 (Version 1)
Quarter: 2020Q1

REPORT INFORMATION
  Report Type: Spontaneous
  Country: DE (occurrence: DE)
  Receive Date: 20200103
  Receipt Date: 20200103
  Transmission Date: 20200409
  Serious: Yes (Hospitalization)
  Sender: FDA-Public Use
  Company Number: DE-009507513-1912DEU012257

PATIENT
  Age: 75 Year
  Sex: Female

DRUGS (11)
  1. ASPIRIN. [Concomitant]
     Active Substance: ASPIRIN
     Dosage: 100 MG, 1-0-0-0, TABLET
  2. CARBIMAZOLE [Concomitant]
     Active Substance: CARBIMAZOLE
     Dosage: 10 MG, 1-0-1-0, TABLET
  3. XELEVIA [Suspect]
     Active Substance: SITAGLIPTIN PHOSPHATE
     Dosage: 100 MG, 1-0-0-0, TABLET
  4. AMLODIPIN (AMLODIPINE MALEATE) [Suspect]
     Active Substance: AMLODIPINE MALEATE
     Dosage: 5 MG, 0-0-1-0, TABLET
  5. MAGNETRANS FORTE [Concomitant]
     Active Substance: MAGNESIUM OXIDE
     Dosage: 150 MG, 1-0-0-0, CAPSULE
  6. PANTOPRAZOLE SODIUM. [Concomitant]
     Active Substance: PANTOPRAZOLE SODIUM
     Dosage: 40 MG, 1-0-0-0, TABLET
  7. CANDESARTAN. [Concomitant]
     Active Substance: CANDESARTAN
     Dosage: 8 MG, 1-0-1-0, TABLET
  8. EXELON [Concomitant]
     Active Substance: RIVASTIGMINE TARTRATE
     Dosage: 9.5 MG / DAY, 1X ;(STRENGTH: 9.5 MG/24 HOURS TRANSDERMAL PLASTER)
     Route: 062
  9. HUMALOG [Concomitant]
     Active Substance: INSULIN LISPRO
     Dosage: 100 IE/10 ML, ACCORDING TO BLOOD SUGAR, INJECTION/INFUSION SOLUTION
     Route: 058
  10. METFORMIN [Concomitant]
     Active Substance: METFORMIN HYDROCHLORIDE
     Dosage: 1000 MG, 1-0-1-0, TABLET; STRENGTH : 1000 (NO UNITS PROVIDED)
  11. HYDROCORTISONE. [Concomitant]
     Active Substance: HYDROCORTISONE
     Dosage: 10 MG, 1-0.5-0.5-0.5, TABLET

REACTIONS (2)
  - Constipation [Recovered/Resolved]
  - General physical health deterioration [Recovered/Resolved]
